FAERS Safety Report 5266679-X (Version None)
Quarter: 2007Q1

REPORT INFORMATION
  Report Type: 
  Country: None (occurrence: None)
  Receive Date: 20070312
  Receipt Date: 20070228
  Transmission Date: 20070707
  Serious: Yes (Other)
  Sender: FDA-Public Use
  Company Number: 2007JP000783

PATIENT
  Age: 64 Year
  Sex: Female
  Weight: 75 kg

DRUGS (9)
  1. VESICARE [Suspect]
     Indication: POLLAKIURIA
     Dosage: 5 MG, UID/QD, ORAL
     Route: 048
     Dates: start: 20061101, end: 20070103
  2. CARDENALIN (DOXAZOSIN MESILATE) TABLET, 1 MG [Concomitant]
  3. BLOPRESS (CANDESARTAN CILEXETIL) PER ORAL NOS [Concomitant]
  4. TAKEPRON (LANSOPRAZOLE) PER ORAL NOS [Concomitant]
  5. ACTOS (PIOGLITAZONE HYDROCHLORIDE) PER ORAL NOS [Concomitant]
  6. AMARYL (GLIMEPIRIDE) TABLET, 1 MG [Concomitant]
  7. BAYASPIRIN PER ORAL NOS [Concomitant]
  8. LOXONIN (LOXOPROFEN SODIUM) PER ORAL NOS [Concomitant]
  9. LENDORMIN (BROTIZOLAM) PER ORAL NOS [Concomitant]

REACTIONS (2)
  - URINARY RETENTION [None]
  - VENOUS THROMBOSIS [None]
